FAERS Safety Report 4463311-X (Version None)
Quarter: 2004Q3

REPORT INFORMATION
  Report Type: 
  Country: None (occurrence: None)
  Receive Date: 20040930
  Receipt Date: 20040920
  Transmission Date: 20050211
  Serious: Yes (Hospitalization)
  Sender: FDA-Public Use
  Company Number: US-BRISTOL-MYERS SQUIBB COMPANY-12707022

PATIENT
  Age: 50 Year
  Sex: Male

DRUGS (3)
  1. ARIPIPRAZOLE [Suspect]
     Indication: SCHIZOAFFECTIVE DISORDER
     Dosage: 15 MG/DAY, INCREASED TO 30 MG/DAY; THEN STOPPED, THEN 15 MG/DAY, THEN D/C
  2. QUETIAPINE [Concomitant]
  3. DIVALPROEX SODIUM [Concomitant]

REACTIONS (1)
  - SCHIZOAFFECTIVE DISORDER [None]
